FAERS Safety Report 7481878-4 (Version None)
Quarter: 2011Q2

REPORT INFORMATION
  Report Type: 
  Country: None (occurrence: None)
  Receive Date: 20110516
  Receipt Date: 20110412
  Transmission Date: 20111010
  Serious: Yes (Hospitalization, Other)
  Sender: FDA-Public Use
  Company Number: US-BAYER-201037983NA

PATIENT
  Age: 23 Year
  Sex: Female
  Weight: 47.619 kg

DRUGS (1)
  1. YASMIN [Suspect]
     Indication: PROPHYLAXIS
     Route: 048
     Dates: start: 20011201

REACTIONS (1)
  - CHOLECYSTITIS CHRONIC [None]
